FAERS Safety Report 5671295-1 (Version None)
Quarter: 2008Q1

REPORT INFORMATION
  Report Type: 
  Country: None (occurrence: None)
  Receive Date: 20080318
  Receipt Date: 20080312
  Transmission Date: 20080703
  Serious: Yes (Hospitalization, Other)
  Sender: FDA-Public Use
  Company Number: US-BRISTOL-MYERS SQUIBB COMPANY-14085856

PATIENT
  Age: 60 Year
  Sex: Female

DRUGS (11)
  1. IXEMPRA [Suspect]
     Indication: BREAST CANCER METASTATIC
     Route: 042
     Dates: start: 20080213
  2. RADIATION THERAPY [Suspect]
     Dosage: THORACIC VERTEBRAE T1-T3 2750 CGY, T6-T12 3025 CGY
     Route: 038
     Dates: start: 20080123, end: 20080206
  3. OXYCODONE HCL ER [Concomitant]
     Dates: end: 20080220
  4. DILAUDID [Concomitant]
     Dates: end: 20080228
  5. FENTANYL [Concomitant]
     Route: 062
  6. LORAZEPAM [Concomitant]
     Dosage: Q8 HRS PRN.RESTARTED ON 29FEB08. RESUMED ON 29-FEB-2008
     Dates: end: 20080220
  7. COMPAZINE [Concomitant]
     Indication: NAUSEA
     Dosage: THEN 25MG SUPPOSITORIES. WAS HELD WHILE IN HOSPITAL.
     Route: 048
  8. ZOFRAN [Concomitant]
     Dosage: TO ORAL Q8 HRS. THEN TO HOME 29-FEB-2008
     Route: 042
     Dates: end: 20080228
  9. LORTAB [Concomitant]
     Indication: NAUSEA
     Dosage: 1 DOSAGE FORM = 5/500 (UNITS NOT SPECIFIED).
  10. LEVOFLOXACIN [Concomitant]
     Dates: start: 20080220, end: 20080229
  11. CIMETIDINE [Concomitant]
     Dates: start: 20080220, end: 20080229

REACTIONS (9)
  - ABDOMINAL PAIN [None]
  - CHOLELITHIASIS [None]
  - FATIGUE [None]
  - HEPATIC ENZYME INCREASED [None]
  - NEUTROPHIL COUNT DECREASED [None]
  - ODYNOPHAGIA [None]
  - PAIN [None]
  - PLATELET COUNT DECREASED [None]
  - RECALL PHENOMENON [None]
